FAERS Safety Report 10624902 (Version 1)
Quarter: 2014Q4

REPORT INFORMATION
  Report Type: Spontaneous
  Country: GR (occurrence: None)
  Receive Date: 20141202
  Receipt Date: 20141202
  Transmission Date: 20150529
  Serious: Yes (Life-Threatening, Hospitalization)
  Sender: FDA-Public Use
  Company Number: IPC201411-000635

PATIENT
  Age: 59 Year
  Sex: Male

DRUGS (8)
  1. METFORMIN HYDROCHLORIDE (METFORMIN HYDROCHLORIDE) (METFORMIN HYDROCHLORIDE) [Suspect]
     Active Substance: METFORMIN HYDROCHLORIDE
     Dosage: 1 GRAM, TWICE DAILY?
  2. SPIRONOLACTONE (SPIRONOLACTONE) (SPIRONOLACTONE) [Suspect]
     Active Substance: SPIRONOLACTONE
     Dosage: 25 MG DAILY
  3. ASPIRIN. [Suspect]
     Active Substance: ASPIRIN
  4. CARVEDILOL (CARVEDILOL) (CARVEDILOL) [Suspect]
     Active Substance: CARVEDILOL
     Dosage: 12.5 MG TWICE DAILY
  5. INSULIN [Suspect]
     Active Substance: INSULIN NOS
  6. DICLOFENAC [Suspect]
     Active Substance: DICLOFENAC
     Indication: BACK PAIN
     Dosage: 150 MG PER DAY
  7. TELMISARTAN/HYDROCHLOROTHIAZIDE [Suspect]
     Active Substance: HYDROCHLOROTHIAZIDE\TELMISARTAN
     Dosage: 80/12.5 MG PER DAY
  8. CLOPIDOGREL [Suspect]
     Active Substance: CLOPIDOGREL BISULFATE

REACTIONS (6)
  - Muscular weakness [None]
  - Hyperkalaemia [None]
  - Renal failure [None]
  - Hyperglycaemia [None]
  - Back pain [None]
  - Metabolic acidosis [None]
